FAERS Safety Report 25328234 (Version 2)
Quarter: 2025Q2

REPORT INFORMATION
  Report Type: Report from Study
  Country: GB (occurrence: GB)
  Receive Date: 20250518
  Receipt Date: 20250528
  Transmission Date: 20250716
  Serious: No
  Sender: ABBVIE
  Company Number: GB-ABBVIE-6279896

PATIENT
  Sex: Female

DRUGS (1)
  1. SKYRIZI [Suspect]
     Active Substance: RISANKIZUMAB-RZAA
     Indication: Crohn^s disease
     Dosage: STRENGTH:  360MG/2.4ML, DOSE: 1.00 EA,?DOSE FORM: SOLUTION FOR INJECTION IN CARTRIDGE
     Route: 058
     Dates: start: 20240805

REACTIONS (1)
  - Malaise [Unknown]
